FAERS Safety Report 23142179 (Version 1)
Quarter: 2023Q4

REPORT INFORMATION
  Report Type: Spontaneous
  Country: BR (occurrence: BR)
  Receive Date: 20231103
  Receipt Date: 20231103
  Transmission Date: 20240110
  Serious: Yes (Other)
  Sender: FDA-Public Use
  Company Number: None

PATIENT
  Age: 46 Year
  Sex: Female
  Weight: 53 kg

DRUGS (9)
  1. KEYTRUDA [Suspect]
     Active Substance: PEMBROLIZUMAB
     Indication: Non-small cell lung cancer
     Dosage: 200 MILLIGRAM, CYCLE 1
     Route: 042
     Dates: start: 20230627, end: 20230627
  2. KEYTRUDA [Suspect]
     Active Substance: PEMBROLIZUMAB
     Dosage: 200 MILLIGRAM, CYCLE 2
     Route: 042
     Dates: start: 20230721, end: 20230721
  3. KEYTRUDA [Suspect]
     Active Substance: PEMBROLIZUMAB
     Dosage: 200 MILLIGRAM, CYCLE 3
     Route: 042
     Dates: start: 20230811, end: 20230811
  4. CARBOPLATIN [Suspect]
     Active Substance: CARBOPLATIN
     Indication: Non-small cell lung cancer
     Dosage: CYCLE 1
     Dates: start: 20230627, end: 20230627
  5. CARBOPLATIN [Suspect]
     Active Substance: CARBOPLATIN
     Dosage: CYCLE 2
     Dates: start: 20230721, end: 20230721
  6. CARBOPLATIN [Suspect]
     Active Substance: CARBOPLATIN
     Dosage: CYCLE 3
     Dates: start: 20230811, end: 20230811
  7. PEMETREXED [Suspect]
     Active Substance: PEMETREXED
     Indication: Non-small cell lung cancer
     Dosage: CYCLE 1
     Dates: start: 20230627, end: 20230627
  8. PEMETREXED [Suspect]
     Active Substance: PEMETREXED
     Dosage: CYCLE 2
     Dates: start: 20230721, end: 20230721
  9. PEMETREXED [Suspect]
     Active Substance: PEMETREXED
     Dosage: CYCLE 3
     Dates: start: 20230811, end: 20230811

REACTIONS (1)
  - Immune-mediated neuropathy [Recovered/Resolved]
